FAERS Safety Report 9870264 (Version 7)
Quarter: 2014Q2

REPORT INFORMATION
  Report Type: Spontaneous
  Country: US (occurrence: US)
  Receive Date: 20140205
  Receipt Date: 20140618
  Transmission Date: 20141212
  Serious: Yes (Other)
  Sender: FDA-Public Use
  Company Number: US-PFIZER INC-2014029303

PATIENT
  Age: 50 Year
  Sex: Female
  Weight: 81.2 kg

DRUGS (12)
  1. SUTENT [Suspect]
     Indication: METASTATIC RENAL CELL CARCINOMA
     Dosage: 50 MG, DAILY CYCLIC
     Dates: start: 20140109, end: 20140219
  2. SUTENT [Suspect]
     Dosage: 50 MG, DAILY
     Dates: start: 20140307, end: 20140508
  3. LEVOTHYROXINE [Concomitant]
     Dosage: UNK
  4. PRAVASTATIN [Concomitant]
     Dosage: UNK
  5. DEXILANT [Concomitant]
     Dosage: UNK
  6. OXYCODONE [Concomitant]
     Dosage: UNK
  7. CALCIUM W/MAGNESIUM [Concomitant]
     Dosage: UNK
  8. VITAMIN D3 [Concomitant]
     Dosage: UNK
  9. VITAMIN B12 [Concomitant]
     Dosage: UNK
  10. VITAMIN B1 [Concomitant]
     Dosage: UNK
  11. BIOTENE [Concomitant]
     Indication: SUPPLEMENTATION THERAPY
     Dosage: UNK
     Route: 048
  12. LINZESS [Concomitant]
     Dosage: UNK

REACTIONS (24)
  - Postoperative wound infection [Unknown]
  - Skin necrosis [Unknown]
  - Blood folate decreased [Recovered/Resolved]
  - Oral pain [Unknown]
  - Oral discomfort [Unknown]
  - Dysgeusia [Unknown]
  - Ageusia [Unknown]
  - Gingival bleeding [Unknown]
  - Flatulence [Unknown]
  - Lip dry [Unknown]
  - Dry skin [Unknown]
  - Liver function test abnormal [Recovered/Resolved]
  - Enzyme level increased [Recovered/Resolved]
  - Hernia pain [Unknown]
  - Melanocytic naevus [Unknown]
  - Skin fissures [Recovered/Resolved]
  - Gingival inflammation [Unknown]
  - Pruritus [Unknown]
  - Dizziness [Recovering/Resolving]
  - Nausea [Recovering/Resolving]
  - Rash [Recovering/Resolving]
  - Erythema [Recovering/Resolving]
  - Gastrooesophageal reflux disease [Unknown]
  - Skin discolouration [Recovering/Resolving]
